FAERS Safety Report 8616868-9 (Version None)
Quarter: 2012Q3

REPORT INFORMATION
  Report Type: 
  Country: None (occurrence: None)
  Receive Date: 20120823
  Receipt Date: 20120809
  Transmission Date: 20120928
  Serious: No
  Sender: FDA-Public Use
  Company Number: US-009507513-1208USA004712

PATIENT

DRUGS (1)
  1. IMPLANON [Suspect]
     Indication: CONTRACEPTION
     Dosage: 1 ROD
     Route: 059
     Dates: start: 20120522, end: 20120807

REACTIONS (4)
  - MENOMETRORRHAGIA [None]
  - ACNE [None]
  - WEIGHT INCREASED [None]
  - ABDOMINAL DISTENSION [None]
